FAERS Safety Report 6085546-5 (Version None)
Quarter: 2009Q1

REPORT INFORMATION
  Report Type: 
  Country: None (occurrence: None)
  Receive Date: 20090220
  Receipt Date: 20090209
  Transmission Date: 20090719
  Serious: Yes (Disabling, Other)
  Sender: FDA-Public Use
  Company Number: DE-PFIZER INC-2009166969

PATIENT

DRUGS (1)
  1. ZITHROMAX [Suspect]
     Indication: BRONCHITIS
     Dosage: 500 MG, 1X/DAY
     Dates: start: 20080601, end: 20080601

REACTIONS (6)
  - ANXIETY [None]
  - ARTHROPATHY [None]
  - AUTOIMMUNE DISORDER [None]
  - BRADYCARDIA [None]
  - TACHYCARDIA [None]
  - VOMITING [None]
